FAERS Safety Report 5128519-9 (Version None)
Quarter: 2006Q4

REPORT INFORMATION
  Report Type: 
  Country: None (occurrence: None)
  Receive Date: 20061011
  Receipt Date: 20060925
  Transmission Date: 20070319
  Serious: Yes (Hospitalization)
  Sender: FDA-Public Use
  Company Number: US-CVT-061859

PATIENT
  Age: 83 Year
  Sex: Male
  Weight: 79.8 kg

DRUGS (16)
  1. RANEXA [Suspect]
     Indication: ANGINA PECTORIS
     Dosage: 500 MG, ORAL
     Route: 048
     Dates: start: 20060905
  2. ZYPREXA [Concomitant]
  3. KLONOPIN [Concomitant]
  4. ACIPHEX [Concomitant]
  5. DDAVP/00361901/ 0.1% (DESMOPRESSIN) [Concomitant]
  6. AGGRENOX [Concomitant]
  7. COLACE (DOCUSATE SODIUM) [Concomitant]
  8. PROSCAR [Concomitant]
  9. FOLATE (FOLIC ACID) [Concomitant]
  10. IMDUR [Concomitant]
  11. ZOCOR [Concomitant]
  12. DIOVAN /01319601/ (VALSARTAN) [Concomitant]
  13. PAMELOR [Concomitant]
  14. CREON/00014701/ (PANCREATIN) [Concomitant]
  15. PAMELOR [Concomitant]
  16. DURAGESIC-100 [Concomitant]

REACTIONS (7)
  - BLOOD SODIUM DECREASED [None]
  - DIARRHOEA [None]
  - DIZZINESS [None]
  - HAEMATOCRIT DECREASED [None]
  - HAEMOGLOBIN DECREASED [None]
  - PNEUMONIA [None]
  - TREMOR [None]
